FAERS Safety Report 9464418 (Version 3)
Quarter: 2013Q4

REPORT INFORMATION
  Report Type: Spontaneous
  Country: JP (occurrence: JP)
  Receive Date: 20130819
  Receipt Date: 20131106
  Transmission Date: 20140711
  Serious: Yes (Death, Other)
  Sender: FDA-Public Use
  Company Number: JP-TEVA-427055ISR

PATIENT
  Age: 58 Year
  Sex: Male
  Weight: 69 kg

DRUGS (16)
  1. CISPLATIN [Suspect]
     Indication: NEUROENDOCRINE CARCINOMA
     Dosage: 110 MILLIGRAM DAILY; 110 MG/BODY
     Route: 041
     Dates: start: 20120424, end: 20120424
  2. CISPLATIN [Suspect]
     Dosage: 20 MILLIGRAM DAILY; 20 MG/BODY (11 MG/M2)
     Route: 013
     Dates: start: 20120620, end: 20120620
  3. CISPLATIN [Suspect]
     Dosage: 40 MILLIGRAM DAILY; 40 MG/BODY (22 MG/M2)
     Route: 013
     Dates: start: 20120725, end: 20120725
  4. CISPLATIN [Suspect]
     Dosage: 20 MILLIGRAM DAILY; 20 MG/BODY (11 MG/M2)
     Route: 013
     Dates: start: 20120824, end: 20120824
  5. CISPLATIN [Suspect]
     Dosage: 20 MILLIGRAM DAILY;
     Route: 013
     Dates: start: 20121001, end: 20121001
  6. CAMPTO [Suspect]
     Indication: NEUROENDOCRINE CARCINOMA
     Dosage: 110 MILLIGRAM DAILY; 100 MG/BODY ON DAYS 1,8
     Route: 041
     Dates: start: 20120424, end: 20120424
  7. CAMPTO [Suspect]
     Dosage: 110 MILLIGRAM DAILY;
     Route: 041
     Dates: start: 20120501, end: 20120501
  8. CAMPTO [Suspect]
     Dosage: 40 MILLIGRAM DAILY; 40 MG/BODY (22 MM/M2)
     Route: 013
     Dates: start: 20120620, end: 20120620
  9. CAMPTO [Suspect]
     Dosage: 40 MILLIGRAM DAILY;
     Route: 013
     Dates: start: 20120725, end: 20120725
  10. CAMPTO [Suspect]
     Dosage: 40 MILLIGRAM DAILY;
     Route: 013
     Dates: start: 20120824, end: 20120824
  11. CAMPTO [Suspect]
     Dosage: 40 MILLIGRAM DAILY;
     Route: 013
     Dates: start: 20121001, end: 20121001
  12. DECADRON [Concomitant]
     Dates: start: 20120424, end: 20120501
  13. KYTRIL [Concomitant]
     Dates: start: 20120424, end: 20120501
  14. ZOFRAN [Concomitant]
     Dates: start: 20120506, end: 20120509
  15. NEUTROGIN [Concomitant]
     Dates: start: 20120508, end: 20120510
  16. CEFMETAZON [Concomitant]
     Dates: start: 20120508, end: 20120514

REACTIONS (7)
  - Condition aggravated [Fatal]
  - Leukopenia [Recovered/Resolved]
  - Metastases to liver [Unknown]
  - Tumour thrombosis [Unknown]
  - Nausea [Recovered/Resolved]
  - Pyrexia [Recovered/Resolved]
  - Diarrhoea [Recovered/Resolved]
